FAERS Safety Report 4509229-5 (Version None)
Quarter: 2004Q4

REPORT INFORMATION
  Report Type: 
  Country: None (occurrence: None)
  Receive Date: 20041025
  Receipt Date: 20040706
  Transmission Date: 20050328
  Serious: Yes (Life-Threatening, Hospitalization, Other)
  Sender: FDA-Public Use
  Company Number: US-JNJFOC-20040701706

PATIENT
  Age: 30 Year
  Sex: Male

DRUGS (5)
  1. REMICADE [Suspect]
     Indication: RHEUMATOID ARTHRITIS
     Dosage: INTRAVENOUS
     Route: 042
     Dates: start: 20020101, end: 20020501
  2. ENBREL [Suspect]
     Indication: RHEUMATOID ARTHRITIS
     Dosage: 25 MG, SUBCUTANEOUS
     Route: 058
     Dates: start: 20030301, end: 20030627
  3. METHOTREXATE [Concomitant]
  4. METHYLPREDNISOLONE [Concomitant]
  5. CELECOXIB (CELECOXIB) [Concomitant]

REACTIONS (1)
  - PULMONARY TUBERCULOSIS [None]
